FAERS Safety Report 7986833-3 (Version None)
Quarter: 2011Q4

REPORT INFORMATION
  Report Type: 
  Country: None (occurrence: None)
  Receive Date: 20111216
  Receipt Date: 20110912
  Transmission Date: 20120403
  Serious: Yes (Other)
  Sender: FDA-Public Use
  Company Number: US-BRISTOL-MYERS SQUIBB COMPANY-16027286

PATIENT
  Age: 9 Year
  Sex: Male

DRUGS (2)
  1. ABILIFY [Suspect]
     Dosage: ABLE TO TOLERATE 2MG BID,INCREASED TO 5MG
  2. GUANFACINE HYDROCHLORIDE [Concomitant]
     Dosage: INTUNIV

REACTIONS (1)
  - ANGIOEDEMA [None]
